FAERS Safety Report 9626208 (Version 2)
Quarter: 2013Q4

REPORT INFORMATION
  Report Type: Spontaneous
  Country: US (occurrence: US)
  Receive Date: 20131016
  Receipt Date: 20131121
  Transmission Date: 20140711
  Serious: Yes (Other)
  Sender: FDA-Public Use
  Company Number: US-PFIZER INC-2013293257

PATIENT
  Age: 73 Year
  Sex: Female
  Weight: 66.7 kg

DRUGS (3)
  1. PREMARIN [Suspect]
     Indication: URINARY TRACT INFECTION
     Dosage: UNK
     Route: 067
  2. PREMARIN [Suspect]
     Indication: FUNGAL INFECTION
     Dosage: 2 G, 2X/DAY
     Route: 067
     Dates: start: 2013
  3. AMLODIPINE/BENAZEPRIL [Concomitant]
     Indication: HYPERTENSION
     Dosage: 10MG (AMLODIPINE) / 20MG (BENAZEPRIL), 1X/DAY

REACTIONS (3)
  - Diabetes mellitus [Not Recovered/Not Resolved]
  - Foot fracture [Not Recovered/Not Resolved]
  - Exostosis [Not Recovered/Not Resolved]
